FAERS Safety Report 10411337 (Version 1)
Quarter: 2014Q3

REPORT INFORMATION
  Report Type: Report from Study
  Country: ZA (occurrence: ZA)
  Receive Date: 20140826
  Receipt Date: 20140826
  Transmission Date: 20150326
  Serious: Yes (Death, Hospitalization, Other)
  Sender: FDA-Public Use
  Company Number: ZA-BAYER-2014-068598

PATIENT
  Age: 58 Year
  Sex: Female

DRUGS (1)
  1. BETAFERON [Suspect]
     Active Substance: INTERFERON BETA-1B
     Indication: MULTIPLE SCLEROSIS
     Dosage: UNK

REACTIONS (11)
  - Multiple sclerosis [None]
  - Gastrointestinal disorder [None]
  - Lung neoplasm malignant [Fatal]
  - Gastrointestinal bacterial infection [None]
  - Adverse drug reaction [None]
  - Fatigue [None]
  - Vertigo [None]
  - Headache [None]
  - Gastrointestinal pain [Not Recovered/Not Resolved]
  - Optic neuritis [None]
  - Dysphonia [None]

NARRATIVE: CASE EVENT DATE: 2011
